FAERS Safety Report 6505580-8 (Version None)
Quarter: 2009Q4

REPORT INFORMATION
  Report Type: 
  Country: None (occurrence: None)
  Receive Date: 20091218
  Receipt Date: 20091210
  Transmission Date: 20100525
  Serious: Yes (Hospitalization)
  Sender: FDA-Public Use
  Company Number: DE-ROCHE-673191

PATIENT
  Age: 6 Year
  Sex: Male

DRUGS (3)
  1. TAMIFLU [Suspect]
     Indication: H1N1 INFLUENZA
     Route: 048
     Dates: start: 20091110, end: 20091115
  2. ERGENYL [Interacting]
     Indication: EPILEPSY
     Route: 048
     Dates: start: 20060101, end: 20091110
  3. TOPAMAX [Concomitant]
     Indication: EPILEPSY
     Route: 048
     Dates: start: 20090101

REACTIONS (5)
  - DRUG INTERACTION [None]
  - HAEMORRHAGE [None]
  - HEPATIC FAILURE [None]
  - LEUKOPENIA [None]
  - THROMBOCYTOPENIA [None]
